FAERS Safety Report 24238165 (Version 1)
Quarter: 2024Q3

REPORT INFORMATION
  Report Type: Spontaneous
  Country: GB (occurrence: GB)
  Receive Date: 20240822
  Receipt Date: 20240822
  Transmission Date: 20241017
  Serious: Yes (Other)
  Sender: JOHNSON AND JOHNSON
  Company Number: GB-MHRA-TPP46140130C10197034YC1724156051063

PATIENT
  Age: 19 Year
  Sex: Female
  Weight: 73 kg

DRUGS (4)
  1. CONCERTA [Suspect]
     Active Substance: METHYLPHENIDATE HYDROCHLORIDE
     Indication: Product used for unknown indication
     Dosage: EACH MORNING
     Route: 048
     Dates: start: 20240723
  2. ALBUTEROL [Concomitant]
     Active Substance: ALBUTEROL
     Route: 055
     Dates: start: 20200316
  3. PROMETHAZINE HYDROCHLORIDE [Concomitant]
     Active Substance: PROMETHAZINE HYDROCHLORIDE
     Dosage: EVERY DAY WHEN REQUIRED AS PER CHILD AND ADOLESCENT MENTAL HEALTH SERVICES
     Route: 065
     Dates: start: 20221101
  4. SERTRALINE [Concomitant]
     Active Substance: SERTRALINE HYDROCHLORIDE
     Route: 065
     Dates: start: 20230113

REACTIONS (10)
  - Central nervous system stimulation [Recovered/Resolved]
  - Paranoia [Unknown]
  - Psychomotor hyperactivity [Unknown]
  - Insomnia [Unknown]
  - Disturbance in attention [Unknown]
  - Restlessness [Unknown]
  - Feeding disorder [Unknown]
  - Drug intolerance [Unknown]
  - Abnormal behaviour [Unknown]
  - Logorrhoea [Unknown]

NARRATIVE: CASE EVENT DATE: 20240819
